FAERS Safety Report 4415855-4 (Version None)
Quarter: 2004Q3

REPORT INFORMATION
  Report Type: 
  Country: None (occurrence: None)
  Receive Date: 20040730
  Receipt Date: 20040721
  Transmission Date: 20050211
  Serious: Yes (Hospitalization)
  Sender: FDA-Public Use
  Company Number: 2004-07-0972

PATIENT
  Age: 36 Year
  Sex: Male

DRUGS (3)
  1. TEMODAL [Suspect]
     Indication: OLIGODENDROGLIOMA
     Dosage: ORAL
     Route: 048
  2. RADIATION THERAPY NO DOSE FORM [Suspect]
     Indication: OLIGODENDROGLIOMA
     Dosage: X-RAY THERAPY
  3. CHEMOTHERAPY REGIMENS [Suspect]
     Indication: OLIGODENDROGLIOMA

REACTIONS (6)
  - ANAEMIA [None]
  - COUGH [None]
  - DYSPNOEA [None]
  - INFECTION [None]
  - NEUTROPENIA [None]
  - PYREXIA [None]
